FAERS Safety Report 19960894 (Version 7)
Quarter: 2025Q2

REPORT INFORMATION
  Report Type: Report from Study
  Country: US (occurrence: US)
  Receive Date: 20211016
  Receipt Date: 20250401
  Transmission Date: 20250716
  Serious: Yes (Other)
  Sender: TAKEDA
  Company Number: US-TAKEDA-2021TUS063092

PATIENT
  Age: 57 Year
  Sex: Female

DRUGS (5)
  1. VONICOG ALFA [Suspect]
     Active Substance: VONICOG ALFA
     Indication: Haemorrhage
  2. VONICOG ALFA [Suspect]
     Active Substance: VONICOG ALFA
     Indication: Prophylaxis
  3. VONICOG ALFA [Suspect]
     Active Substance: VONICOG ALFA
  4. VONICOG ALFA [Suspect]
     Active Substance: VONICOG ALFA
  5. VONICOG ALFA [Suspect]
     Active Substance: VONICOG ALFA

REACTIONS (3)
  - Epistaxis [Recovering/Resolving]
  - COVID-19 [Unknown]
  - Sinusitis [Unknown]

NARRATIVE: CASE EVENT DATE: 20211007
